FAERS Safety Report 10155417 (Version 1)
Quarter: 2014Q2

REPORT INFORMATION
  Report Type: Spontaneous
  Country: US (occurrence: US)
  Receive Date: 20140506
  Receipt Date: 20140506
  Transmission Date: 20141212
  Serious: No
  Sender: FDA-Public Use
  Company Number: US-009507513-1405USA002202

PATIENT
  Age: 70 Year
  Sex: Female

DRUGS (4)
  1. PEGINTRON [Suspect]
     Indication: HEPATITIS C
     Dosage: ONCE WEEKLY INJECTION
     Dates: start: 20140429
  2. SERTRALINE HYDROCHLORIDE [Concomitant]
  3. OMEPRAZOLE [Concomitant]
     Route: 048
  4. METOPROLOL [Concomitant]

REACTIONS (4)
  - Amnesia [Not Recovered/Not Resolved]
  - Influenza like illness [Not Recovered/Not Resolved]
  - Dizziness [Not Recovered/Not Resolved]
  - Product quality issue [Unknown]
